FAERS Safety Report 20057970 (Version 10)
Quarter: 2023Q1

REPORT INFORMATION
  Report Type: Report from Study
  Country: CO (occurrence: CO)
  Receive Date: 20211111
  Receipt Date: 20230105
  Transmission Date: 20230417
  Serious: Yes (Hospitalization, Other)
  Sender: FDA-Public Use
  Company Number: CO-TAKEDA-CO202016718

PATIENT
  Age: 11 Year
  Sex: Male
  Weight: 34 kg

DRUGS (5)
  1. IDURSULFASE [Suspect]
     Active Substance: IDURSULFASE
     Indication: Mucopolysaccharidosis II
     Dosage: 0.5 MICROGRAM/KILOGRAM, 1/WEEK
     Route: 042
     Dates: start: 20130226
  2. IDURSULFASE [Suspect]
     Active Substance: IDURSULFASE
     Dosage: 24 MILLIGRAM, 1/WEEK
     Route: 042
     Dates: start: 20130226
  3. IDURSULFASE [Suspect]
     Active Substance: IDURSULFASE
     Dosage: 18 MILLIGRAM, 1/WEEK
     Route: 042
     Dates: start: 20130226
  4. IDURSULFASE [Suspect]
     Active Substance: IDURSULFASE
     Dosage: 18 MILLIGRAM
     Route: 042
     Dates: start: 20160722
  5. LEVETIRACETAM [Concomitant]
     Active Substance: LEVETIRACETAM
     Indication: Seizure
     Dosage: UNK, Q8HR
     Route: 048

REACTIONS (34)
  - Oxygen saturation decreased [Recovering/Resolving]
  - Pneumonia [Unknown]
  - Seizure [Recovered/Resolved]
  - Weight decreased [Not Recovered/Not Resolved]
  - Joint injury [Not Recovered/Not Resolved]
  - Crying [Recovering/Resolving]
  - Pain [Not Recovered/Not Resolved]
  - Breath sounds abnormal [Not Recovered/Not Resolved]
  - Facial pain [Not Recovered/Not Resolved]
  - Scratch [Recovering/Resolving]
  - Fall [Recovering/Resolving]
  - Balance disorder [Recovering/Resolving]
  - Nasal congestion [Recovering/Resolving]
  - Discouragement [Recovering/Resolving]
  - Body height decreased [Unknown]
  - Abdominal distension [Recovering/Resolving]
  - Somnolence [Recovering/Resolving]
  - Body height increased [Recovering/Resolving]
  - Cholelithiasis [Recovering/Resolving]
  - Arthralgia [Recovering/Resolving]
  - Cough [Recovering/Resolving]
  - Eye movement disorder [Recovering/Resolving]
  - Vision blurred [Recovering/Resolving]
  - Drooling [Recovering/Resolving]
  - Tremor [Recovering/Resolving]
  - Influenza [Unknown]
  - Pyrexia [Unknown]
  - Malaise [Recovering/Resolving]
  - Productive cough [Recovering/Resolving]
  - Device issue [Not Recovered/Not Resolved]
  - Off label use [Unknown]
  - Product availability issue [Unknown]
  - Product prescribing error [Unknown]
  - Inappropriate schedule of product administration [Unknown]

NARRATIVE: CASE EVENT DATE: 20200511
